FAERS Safety Report 13159426 (Version 1)
Quarter: 2017Q1

REPORT INFORMATION
  Report Type: Spontaneous
  Country: FR (occurrence: FR)
  Receive Date: 20170127
  Receipt Date: 20170127
  Transmission Date: 20170428
  Serious: Yes (Hospitalization)
  Sender: FDA-Public Use
  Company Number: FR-ASTRAZENECA-2017SE07895

PATIENT
  Age: 82 Year
  Sex: Male

DRUGS (2)
  1. CRESTOR [Suspect]
     Active Substance: ROSUVASTATIN CALCIUM
     Indication: ARTERITIS
     Route: 048
     Dates: end: 20161217
  2. KARDEGIC [Suspect]
     Active Substance: ASPIRIN LYSINE
     Indication: ARTERITIS
     Route: 048
     Dates: end: 20161217

REACTIONS (2)
  - Cerebral haematoma [Not Recovered/Not Resolved]
  - Hypertensive angiopathy [Unknown]

NARRATIVE: CASE EVENT DATE: 20161217
